FAERS Safety Report 4910869-X (Version None)
Quarter: 2006Q1

REPORT INFORMATION
  Report Type: 
  Country: None (occurrence: None)
  Receive Date: 20060214
  Receipt Date: 20051218
  Transmission Date: 20060701
  Serious: Yes (Hospitalization, Other)
  Sender: FDA-Public Use
  Company Number: PHEH2005US13607

PATIENT
  Age: 73 Year
  Sex: Male
  Weight: 83.446 kg

DRUGS (16)
  1. GLEEVEC [Suspect]
     Indication: CHRONIC LYMPHOCYTIC LEUKAEMIA
     Dosage: 200 MG, QD
     Route: 048
     Dates: start: 20040501
  2. GLEEVEC [Suspect]
     Dosage: 100 MG, UNK
     Route: 048
     Dates: start: 20040501
  3. GLEEVEC [Suspect]
     Dosage: 200 MG, UNK
     Route: 048
     Dates: start: 20040101
  4. GLEEVEC [Suspect]
     Dosage: 300 MG, UNK
     Route: 048
     Dates: start: 20040101
  5. GLEEVEC [Suspect]
     Dosage: 400 MG, QD
     Route: 048
     Dates: start: 20040401, end: 20040601
  6. GLEEVEC [Suspect]
     Dosage: 400 MG, QD
     Route: 048
     Dates: start: 20051001
  7. HYDREA [Suspect]
     Indication: CHRONIC MYELOID LEUKAEMIA
     Route: 048
     Dates: start: 20040601, end: 20041001
  8. NIACIN [Concomitant]
     Dosage: 2 G, QD
     Route: 048
  9. LEVOTHYROXINE SODIUM [Concomitant]
     Dosage: 0.125 MG, QD
     Route: 048
  10. GLYBURIDE [Concomitant]
     Dosage: 7.5 MG AM, 2.5 MG PM
     Route: 048
  11. LISINOPRIL [Concomitant]
     Dosage: 20 MG, QD
     Route: 048
  12. AMLODIPINE [Concomitant]
     Dosage: 10 MG, QD
     Route: 048
  13. DIGOXIN [Concomitant]
     Dosage: 0.125 MG, QD
     Route: 048
  14. ZOCOR [Concomitant]
     Dosage: 80 MG, QD
     Route: 048
  15. ECOTRIN [Concomitant]
     Dosage: 325 MG, QD
     Route: 048
  16. VITAMIN CAP [Concomitant]

REACTIONS (21)
  - ASTHENIA [None]
  - CATHETERISATION CARDIAC ABNORMAL [None]
  - CEREBRAL INFARCTION [None]
  - CORONARY ARTERY STENOSIS [None]
  - DEHYDRATION [None]
  - DIALYSIS [None]
  - DIARRHOEA [None]
  - DILATATION VENTRICULAR [None]
  - DYSPNOEA [None]
  - EJECTION FRACTION DECREASED [None]
  - EYE SWELLING [None]
  - GAIT DISTURBANCE [None]
  - HAEMODIALYSIS [None]
  - NAUSEA [None]
  - OEDEMA PERIPHERAL [None]
  - PERIORBITAL OEDEMA [None]
  - RENAL FAILURE ACUTE [None]
  - VENTRICULAR HYPOKINESIA [None]
  - VENTRICULAR TACHYCARDIA [None]
  - VISUAL FIELD DEFECT [None]
  - VOMITING [None]
